FAERS Safety Report 5161065-5 (Version None)
Quarter: 2006Q4

REPORT INFORMATION
  Report Type: 
  Country: None (occurrence: None)
  Receive Date: 20061130
  Receipt Date: 20061120
  Transmission Date: 20070319
  Serious: Yes (Hospitalization)
  Sender: FDA-Public Use
  Company Number: FR-BRISTOL-MYERS SQUIBB COMPANY-13587043

PATIENT
  Age: 81 Year
  Sex: Male

DRUGS (5)
  1. APROVEL TABS 150 MG [Suspect]
     Route: 048
  2. PREVISCAN [Suspect]
     Dates: end: 20061004
  3. DIGOXIN [Suspect]
  4. PROFENID LP [Suspect]
     Indication: BACK PAIN
     Dates: start: 20060926, end: 20061004
  5. LANSOPRAZOLE [Concomitant]

REACTIONS (2)
  - GASTRIC ULCER [None]
  - GASTRITIS EROSIVE [None]
